FAERS Safety Report 19777445 (Version 1)
Quarter: 2021Q3

REPORT INFORMATION
  Report Type: Report from Study
  Country: US (occurrence: US)
  Receive Date: 20210901
  Receipt Date: 20210901
  Transmission Date: 20211014
  Serious: Yes (Other)
  Sender: FDA-Public Use
  Company Number: US-BAXTER-2021BAX026955

PATIENT
  Age: 3 Year
  Sex: Male
  Weight: 16.3 kg

DRUGS (13)
  1. CAMPTOSAR [Suspect]
     Active Substance: IRINOTECAN HYDROCHLORIDE
     Dosage: COURSE 2, D1?5 OF CYCLE 2, TOTAL DOSE ADMINISTERED THIS COURSE 182.5 MG
     Route: 065
  2. CYCLOPHOSPHAMIDE FOR INJECTION, USP [Suspect]
     Active Substance: CYCLOPHOSPHAMIDE
     Indication: EMBRYONAL RHABDOMYOSARCOMA
     Dosage: COURSE 1
     Route: 065
  3. CYCLOPHOSPHAMIDE FOR INJECTION, USP [Suspect]
     Active Substance: CYCLOPHOSPHAMIDE
     Dosage: COURSE 2, D1 OF CYCLE 1
     Route: 065
  4. VINCRISTINE SULFATE. [Suspect]
     Active Substance: VINCRISTINE SULFATE
     Indication: EMBRYONAL RHABDOMYOSARCOMA
     Dosage: COURSE 1
     Route: 065
  5. TEMSIROLIMUS. [Suspect]
     Active Substance: TEMSIROLIMUS
     Dosage: COURSE 2, TOTAL DOSE ADMINISTERED THIS COURSE 33 MG, 22 MG ADMINISTERED IN CYCLE 1, 11 MG ADMINISTER
     Route: 065
     Dates: start: 20210115, end: 20210129
  6. DACTINOMYCIN [Suspect]
     Active Substance: DACTINOMYCIN
     Indication: EMBRYONAL RHABDOMYOSARCOMA
     Dosage: COURSE 1
     Route: 065
  7. VINCRISTINE SULFATE. [Suspect]
     Active Substance: VINCRISTINE SULFATE
     Dosage: COURSE 2, D1,8,15, TOTAL DOSE ADMINISTERED THIS COURSE 1.1 MG, 3.3 MG ADMINISTERED IN CYCLE 1, 1.1 M
     Route: 065
  8. TEMSIROLIMUS. [Suspect]
     Active Substance: TEMSIROLIMUS
     Indication: EMBRYONAL RHABDOMYOSARCOMA
     Dosage: COURSE 1
     Route: 065
  9. VINCRISTINE SULFATE. [Suspect]
     Active Substance: VINCRISTINE SULFATE
     Dosage: LAST ADMINISTERED DATE
     Route: 065
     Dates: start: 20210129, end: 20210129
  10. DACTINOMYCIN [Suspect]
     Active Substance: DACTINOMYCIN
     Dosage: COURSE 2, D1 OF CYCLE 1
     Route: 065
  11. CAMPTOSAR [Suspect]
     Active Substance: IRINOTECAN HYDROCHLORIDE
     Indication: EMBRYONAL RHABDOMYOSARCOMA
     Dosage: COURSE 1
     Route: 065
  12. CAMPTOSAR [Suspect]
     Active Substance: IRINOTECAN HYDROCHLORIDE
     Dosage: LAST ADMINISTERED DATE
     Route: 065
     Dates: start: 20210202, end: 20210202
  13. TEMSIROLIMUS. [Suspect]
     Active Substance: TEMSIROLIMUS
     Dosage: LAST ADMINISTERED DATE
     Route: 065
     Dates: start: 20210129, end: 20210129

REACTIONS (1)
  - Proteinuria [Not Recovered/Not Resolved]

NARRATIVE: CASE EVENT DATE: 20210202
